FAERS Safety Report 10588840 (Version 1)
Quarter: 2014Q4

REPORT INFORMATION
  Report Type: Spontaneous
  Country: US (occurrence: US)
  Receive Date: 20141117
  Receipt Date: 20141117
  Transmission Date: 20150529
  Serious: No
  Sender: FDA-Public Use
  Company Number: US-SA-2014SA135395

PATIENT

DRUGS (1)
  1. SKLICE [Suspect]
     Active Substance: IVERMECTIN
     Route: 065

REACTIONS (1)
  - Lice infestation [Unknown]
